FAERS Safety Report 13626366 (Version 1)
Quarter: 2017Q2

REPORT INFORMATION
  Report Type: Spontaneous
  Country: US (occurrence: US)
  Receive Date: 20170531
  Receipt Date: 20170531
  Transmission Date: 20170830
  Serious: Yes (Other)
  Sender: FDA-Public Use
  Company Number: US-ASTELLAS-1355057

PATIENT
  Age: 83 Year
  Sex: Female
  Weight: 74.91 kg

DRUGS (3)
  1. BENADRYL [Concomitant]
     Active Substance: DIPHENHYDRAMINE HYDROCHLORIDE
  2. TARCEVA [Suspect]
     Active Substance: ERLOTINIB HYDROCHLORIDE
     Indication: LUNG NEOPLASM MALIGNANT
     Route: 048
     Dates: start: 20140204
  3. CLARITIN [Concomitant]
     Active Substance: LORATADINE

REACTIONS (10)
  - Rash pruritic [Unknown]
  - Tongue disorder [Unknown]
  - Rash [Not Recovered/Not Resolved]
  - Dry skin [Not Recovered/Not Resolved]
  - Scab [Unknown]
  - Dyspepsia [Unknown]
  - Fatigue [Unknown]
  - Pruritus [Not Recovered/Not Resolved]
  - Localised infection [Unknown]
  - Eczema [Unknown]

NARRATIVE: CASE EVENT DATE: 20140221
